FAERS Safety Report 15943192 (Version 2)
Quarter: 2019Q2

REPORT INFORMATION
  Report Type: Spontaneous
  Country: US (occurrence: US)
  Receive Date: 20190210
  Receipt Date: 20190423
  Transmission Date: 20190711
  Serious: Yes (Other)
  Sender: FDA-Public Use
  Company Number: US-ASTRAZENECA-2018SF25880

PATIENT
  Sex: Male
  Weight: 111.1 kg

DRUGS (41)
  1. PROTONIX [Suspect]
     Active Substance: PANTOPRAZOLE SODIUM
     Indication: DYSPEPSIA
     Route: 065
     Dates: start: 2016
  2. HYDRALAZINE [Concomitant]
     Active Substance: HYDRALAZINE HYDROCHLORIDE
  3. PREDNISONE. [Concomitant]
     Active Substance: PREDNISONE
  4. TERBINAFINE. [Concomitant]
     Active Substance: TERBINAFINE
  5. METOPROLOL. [Concomitant]
     Active Substance: METOPROLOL
  6. HYDROCHLOROTHIAZIDE. [Concomitant]
     Active Substance: HYDROCHLOROTHIAZIDE
  7. LANTUS [Concomitant]
     Active Substance: INSULIN GLARGINE
  8. CLOPIDOGREL [Concomitant]
     Active Substance: CLOPIDOGREL BISULFATE
  9. ZOCOR [Concomitant]
     Active Substance: SIMVASTATIN
  10. VYTORIN [Concomitant]
     Active Substance: EZETIMIBE\SIMVASTATIN
  11. ZANTAC [Concomitant]
     Active Substance: RANITIDINE HYDROCHLORIDE
  12. PRILOSEC OTC [Suspect]
     Active Substance: OMEPRAZOLE MAGNESIUM
     Route: 048
  13. NEXIUM 24HR [Suspect]
     Active Substance: ESOMEPRAZOLE MAGNESIUM
     Route: 048
  14. NITROSTAT [Concomitant]
     Active Substance: NITROGLYCERIN
  15. PANTOPRAZOLE SODIUM. [Concomitant]
     Active Substance: PANTOPRAZOLE SODIUM
  16. NASONEX [Concomitant]
     Active Substance: MOMETASONE FUROATE
  17. NEXIUM [Suspect]
     Active Substance: ESOMEPRAZOLE MAGNESIUM
     Indication: DYSPEPSIA
     Route: 048
     Dates: start: 20041101
  18. NEXIUM [Suspect]
     Active Substance: ESOMEPRAZOLE MAGNESIUM
     Indication: DYSPEPSIA
     Route: 048
     Dates: start: 1998
  19. NEXIUM [Suspect]
     Active Substance: ESOMEPRAZOLE MAGNESIUM
     Indication: DYSPEPSIA
     Dosage: GENERIC
     Route: 065
  20. PRILOSEC [Suspect]
     Active Substance: OMEPRAZOLE MAGNESIUM
     Indication: GASTROOESOPHAGEAL REFLUX DISEASE
     Route: 048
     Dates: start: 2015
  21. LIPITOR [Concomitant]
     Active Substance: ATORVASTATIN CALCIUM
  22. JANUVIA [Concomitant]
     Active Substance: SITAGLIPTIN PHOSPHATE
  23. CICLOPIROX. [Concomitant]
     Active Substance: CICLOPIROX
  24. TOPROL XL [Concomitant]
     Active Substance: METOPROLOL SUCCINATE
  25. NEXIUM [Suspect]
     Active Substance: ESOMEPRAZOLE MAGNESIUM
     Indication: DYSPEPSIA
     Route: 048
     Dates: start: 1995, end: 2016
  26. PLAVIX [Concomitant]
     Active Substance: CLOPIDOGREL BISULFATE
  27. GLIMEPIRIDE. [Concomitant]
     Active Substance: GLIMEPIRIDE
  28. NOVOLOG [Concomitant]
     Active Substance: INSULIN ASPART
  29. LEVOFLOXACIN. [Concomitant]
     Active Substance: LEVOFLOXACIN
  30. DILTIAZEM. [Concomitant]
     Active Substance: DILTIAZEM
  31. PEPCID [Concomitant]
     Active Substance: FAMOTIDINE
  32. METFORMIN [Concomitant]
     Active Substance: METFORMIN HYDROCHLORIDE
  33. ENALAPRIL [Concomitant]
     Active Substance: ENALAPRIL
  34. CLINDAMAX [Concomitant]
     Active Substance: CLINDAMYCIN PHOSPHATE
  35. SPECTAZOLE [Concomitant]
     Active Substance: ECONAZOLE NITRATE
  36. KETOCONAZOLE. [Concomitant]
     Active Substance: KETOCONAZOLE
  37. GLIPIZIDE. [Concomitant]
     Active Substance: GLIPIZIDE
  38. AMLODIPINE BESYLATE. [Concomitant]
     Active Substance: AMLODIPINE BESYLATE
  39. PRAVASTATIN. [Concomitant]
     Active Substance: PRAVASTATIN
  40. ECONAZOLE. [Concomitant]
     Active Substance: ECONAZOLE NITRATE
  41. AZITHROMYCIN ANHYDROUS. [Concomitant]
     Active Substance: AZITHROMYCIN ANHYDROUS

REACTIONS (3)
  - Chronic kidney disease [Not Recovered/Not Resolved]
  - Oesophageal disorder [Not Recovered/Not Resolved]
  - Nephropathy [Unknown]
